FAERS Safety Report 23847365 (Version 1)
Quarter: 2024Q2

REPORT INFORMATION
  Report Type: Spontaneous
  Country: EG (occurrence: EG)
  Receive Date: 20240513
  Receipt Date: 20240513
  Transmission Date: 20240715
  Serious: Yes (Other)
  Sender: FDA-Public Use
  Company Number: EG-HIKMA PHARMACEUTICALS-EG-H14001-24-03970

PATIENT
  Age: 27 Year
  Sex: Female
  Weight: 72 kg

DRUGS (4)
  1. DOXORUBICIN [Suspect]
     Active Substance: DOXORUBICIN
     Indication: Breast cancer
     Dosage: 103.2 MILLIGRAM, 3W
     Route: 041
  2. DOXORUBICIN [Suspect]
     Active Substance: DOXORUBICIN
     Dosage: 103.2 MILLIGRAM, 3W
     Route: 041
     Dates: start: 20240311
  3. CYCLOPHOSPHAMIDE [Suspect]
     Active Substance: CYCLOPHOSPHAMIDE
     Indication: Breast cancer
     Dosage: 1032 MILLIGRAM, 3W
     Route: 041
  4. CYCLOPHOSPHAMIDE [Suspect]
     Active Substance: CYCLOPHOSPHAMIDE
     Dosage: 1032 MILLIGRAM, 3W
     Route: 041
     Dates: start: 20240311

REACTIONS (7)
  - Abdominal pain upper [Recovered/Resolved]
  - Dizziness [Recovered/Resolved]
  - Toothache [Not Recovered/Not Resolved]
  - Pain of skin [Not Recovered/Not Resolved]
  - Alopecia [Not Recovered/Not Resolved]
  - White blood cell count decreased [Unknown]
  - Neutropenia [Unknown]

NARRATIVE: CASE EVENT DATE: 20240312
